FAERS Safety Report 5484700-0 (Version None)
Quarter: 2007Q4

REPORT INFORMATION
  Report Type: 
  Country: None (occurrence: None)
  Receive Date: 20071012
  Receipt Date: 20071002
  Transmission Date: 20080405
  Serious: Yes (Hospitalization, Other)
  Sender: FDA-Public Use
  Company Number: JP-PFIZER INC-2007069634

PATIENT
  Age: 63 Year
  Sex: Male

DRUGS (2)
  1. GABAPEN [Suspect]
     Indication: NEURALGIA
     Dosage: DAILY DOSE:1800MG
     Route: 048
     Dates: start: 20070626, end: 20070719
  2. TEGRETOL [Suspect]
     Indication: NEURALGIA

REACTIONS (2)
  - NEUTROPHIL COUNT DECREASED [None]
  - WHITE BLOOD CELL COUNT DECREASED [None]
